FAERS Safety Report 5960228-6 (Version None)
Quarter: 2008Q4

REPORT INFORMATION
  Report Type: 
  Country: None (occurrence: None)
  Receive Date: 20081120
  Receipt Date: 20081112
  Transmission Date: 20090506
  Serious: Yes (Other)
  Sender: FDA-Public Use
  Company Number: US-ELI_LILLY_AND_COMPANY-US200811002784

PATIENT
  Sex: Male

DRUGS (17)
  1. BYETTA [Suspect]
     Indication: TYPE 2 DIABETES MELLITUS
     Dosage: 5 UG, 2/D
     Route: 058
     Dates: start: 20061103, end: 20061207
  2. BYETTA [Suspect]
     Dosage: 10 UG, 2/D
     Route: 058
     Dates: start: 20061208, end: 20081110
  3. AMARYL [Concomitant]
     Indication: DIABETES MELLITUS
     Dosage: 2 MG, EACH MORNING
     Route: 065
  4. AMARYL [Concomitant]
     Dosage: 1 MG, EACH EVENING
     Route: 065
  5. LANTUS [Concomitant]
     Indication: DIABETES MELLITUS
     Dosage: 14 U, EACH EVENING
     Route: 058
  6. LANTUS [Concomitant]
     Dosage: 20 U, EACH EVENING
     Route: 058
     Dates: end: 20080101
  7. LANTUS [Concomitant]
     Dosage: 14 U, EACH EVENING
     Route: 058
     Dates: start: 20080101
  8. PRINIVIL [Concomitant]
     Indication: BLOOD PRESSURE
     Dosage: 5 MG, DAILY (1/D)
     Route: 065
  9. COUMADIN [Concomitant]
     Indication: RENAL TRANSPLANT
     Dosage: 7.5 MG, DAILY (1/D)
     Route: 065
  10. PRAVACHOL [Concomitant]
     Indication: BLOOD CHOLESTEROL
     Dosage: 20 MG, DAILY (1/D)
     Route: 065
  11. ASPIRIN [Concomitant]
     Indication: ATRIAL FIBRILLATION
     Dosage: 81 MG, UNKNOWN
     Route: 065
  12. ATENOLOL [Concomitant]
     Dosage: 25 MG, UNKNOWN
     Route: 065
  13. PREVACID [Concomitant]
     Indication: REFLUX GASTRITIS
     Dosage: 30 MG, 2/D
     Route: 065
  14. LASIX [Concomitant]
     Dosage: 40 MG, DAILY (1/D)
     Route: 065
  15. PROGRAF [Concomitant]
     Indication: RENAL TRANSPLANT
     Dosage: 4 MG, WEEKLY (1/W)
     Route: 065
  16. BACTRIM DS [Concomitant]
     Indication: RENAL TRANSPLANT
     Dosage: UNK, 3/W
     Route: 065
  17. CALCIUM [Concomitant]
     Dosage: UNK, UNKNOWN
     Route: 065

REACTIONS (4)
  - BLOOD GLUCOSE INCREASED [None]
  - HYPOGLYCAEMIA [None]
  - PANCREATITIS [None]
  - REFLUX GASTRITIS [None]
